FAERS Safety Report 21645108 (Version 1)
Quarter: 2022Q4

REPORT INFORMATION
  Report Type: Spontaneous
  Country: FR (occurrence: FR)
  Receive Date: 20221125
  Receipt Date: 20221125
  Transmission Date: 20230112
  Serious: Yes (Hospitalization)
  Sender: FDA-Public Use
  Company Number: None

PATIENT
  Age: 63 Year
  Sex: Female
  Weight: 82 kg

DRUGS (6)
  1. LINEZOLID [Suspect]
     Active Substance: LINEZOLID
     Indication: Postoperative wound infection
     Dosage: DURATION : 2 DAYS
     Route: 065
     Dates: start: 20220920, end: 20220922
  2. LINEZOLID [Suspect]
     Active Substance: LINEZOLID
     Dosage: 600 MILLIGRAM DAILY; 600MG/DAY,  DURATION :4 DAYS
     Route: 065
     Dates: start: 20221014, end: 20221018
  3. LINEZOLID [Suspect]
     Active Substance: LINEZOLID
     Dosage: 1200 MILLIGRAM DAILY; 600MG X2/DAY, DURATION :   2 DAYS
     Route: 065
     Dates: start: 20221012, end: 20221014
  4. CEFEPIME HYDROCHLORIDE [Suspect]
     Active Substance: CEFEPIME HYDROCHLORIDE
     Indication: Postoperative wound infection
     Dosage: 6 GRAM DAILY; 2G X 3/DAY, DURATION : 23 DAYS
     Route: 065
     Dates: start: 20220920, end: 20221013
  5. CEFEPIME HYDROCHLORIDE [Suspect]
     Active Substance: CEFEPIME HYDROCHLORIDE
     Dosage: 2 GRAM DAILY; 1G X 2/DAY , DURATION : 3 DAYS
     Dates: start: 20221014, end: 20221017
  6. OFLOXACIN [Concomitant]
     Active Substance: OFLOXACIN
     Indication: Product used for unknown indication

REACTIONS (2)
  - Encephalopathy [Recovered/Resolved]
  - Acute kidney injury [Recovering/Resolving]

NARRATIVE: CASE EVENT DATE: 20221013
